FAERS Safety Report 8852254 (Version 1)
Quarter: 2012Q4

REPORT INFORMATION
  Report Type: 
  Country: US (occurrence: US)
  Receive Date: 20121022
  Receipt Date: 20121022
  Transmission Date: 20130627
  Serious: No
  Sender: FDA-Public Use
  Company Number: US-MYLANLABS-2012S1004997

PATIENT
  Age: 77 Year
  Sex: Male

DRUGS (1)
  1. CARVEDILOL [Suspect]
     Indication: BLOOD PRESSURE INCREASED
     Route: 048
     Dates: start: 201112

REACTIONS (1)
  - Blood glucose increased [Not Recovered/Not Resolved]
